FAERS Safety Report 8997020 (Version 2)
Quarter: 2013Q1

REPORT INFORMATION
  Report Type: Report from Study
  Country: US (occurrence: US)
  Receive Date: 20130104
  Receipt Date: 20130110
  Transmission Date: 20140127
  Serious: Yes (Hospitalization)
  Sender: FDA-Public Use
  Company Number: US-ACTELION-A-NJ2012-77130

PATIENT
  Age: 45 Year
  Sex: Male

DRUGS (3)
  1. VELETRI [Suspect]
     Indication: PULMONARY ARTERIAL HYPERTENSION
     Dosage: 15 NG/KG, PER MIN
     Route: 041
     Dates: start: 20120802, end: 20121224
  2. VELETRI [Suspect]
     Dosage: UNK
     Route: 041
     Dates: start: 20121224
  3. SILDENAFIL [Concomitant]

REACTIONS (3)
  - Drug dose omission [Unknown]
  - Device malfunction [Recovered/Resolved]
  - Device damage [None]
